FAERS Safety Report 8200736-0 (Version None)
Quarter: 2012Q1

REPORT INFORMATION
  Report Type: 
  Country: None (occurrence: None)
  Receive Date: 20120306
  Receipt Date: 20120220
  Transmission Date: 20120608
  Serious: Yes (Disabling, Other)
  Sender: FDA-Public Use
  Company Number: FK201200504

PATIENT
  Age: 10 Year
  Sex: Male

DRUGS (3)
  1. ASPARAGINASE (ASPARAGINASE) [Concomitant]
  2. METHOTREXATE [Suspect]
     Indication: DRUG THERAPY
     Dosage: 5000 MG/M2, ONCE A WEEK
  3. DEXAMETHASONE INJECTION (MANUFACTURER UNKNOWN)(DEXAMETHASONE SODIUM P [Suspect]
     Indication: DRUG THERAPY
     Dosage: 10 MG/M2, PER  DAY,

REACTIONS (6)
  - CEREBRAL VENOUS THROMBOSIS [None]
  - BACK PAIN [None]
  - HEPATOTOXICITY [None]
  - SUPERIOR SAGITTAL SINUS THROMBOSIS [None]
  - OSTEOPENIA [None]
  - MOBILITY DECREASED [None]
